FAERS Safety Report 4269756-5 (Version None)
Quarter: 2004Q1

REPORT INFORMATION
  Report Type: 
  Country: None (occurrence: None)
  Receive Date: 20040113
  Receipt Date: 20030926
  Transmission Date: 20041129
  Serious: Yes (Death, Hospitalization)
  Sender: FDA-Public Use
  Company Number: WAES 0309USA03242

PATIENT
  Age: 30 Year
  Sex: Male

DRUGS (2)
  1. ALCOHOL [Concomitant]
     Route: 048
  2. STROMECTOL [Suspect]
     Route: 048
     Dates: start: 20030626, end: 20030626

REACTIONS (7)
  - AGITATION [None]
  - APHONIA [None]
  - CHILLS [None]
  - COMA [None]
  - DIARRHOEA [None]
  - INCONTINENCE [None]
  - PRURITUS [None]
